FAERS Safety Report 12861305 (Version 12)
Quarter: 2018Q4

REPORT INFORMATION
  Report Type: Report from Study
  Country: ZA (occurrence: ZA)
  Receive Date: 20161019
  Receipt Date: 20181005
  Transmission Date: 20190204
  Serious: Yes (Other)
  Sender: FDA-Public Use
  Company Number: PHHY2016ZA048486

PATIENT
  Age: 26 Year
  Sex: Female

DRUGS (6)
  1. DESFERAL [Suspect]
     Active Substance: DEFEROXAMINE MESYLATE
     Dosage: 7 VIALS 1 0R 2 WEEKLY
     Route: 065
  2. EXJADE [Suspect]
     Active Substance: DEFERASIROX
     Indication: IRON OVERLOAD
     Dosage: 1750 MG, QD
     Route: 065
     Dates: start: 2007
  3. DESFERAL [Suspect]
     Active Substance: DEFEROXAMINE MESYLATE
     Indication: THALASSAEMIA
     Dosage: 6 DF, QW (7 VIALS 6X/WEEK) VIA PUMP
     Route: 065
  4. DESFERAL [Suspect]
     Active Substance: DEFEROXAMINE MESYLATE
     Dosage: 7 VIALS 4 TIMES A WEEK
     Route: 065
  5. EXJADE [Suspect]
     Active Substance: DEFERASIROX
     Indication: CONGENITAL APLASTIC ANAEMIA
  6. DESFERAL [Suspect]
     Active Substance: DEFEROXAMINE MESYLATE
     Indication: CONGENITAL APLASTIC ANAEMIA
     Dosage: 5 DF, QW (7 VIALS 5X/WEEK) VIA PUMP
     Route: 065
     Dates: start: 1994

REACTIONS (24)
  - Oesophageal disorder [Unknown]
  - Oropharyngeal pain [Unknown]
  - Wrong technique in product usage process [Unknown]
  - Lethargy [Unknown]
  - Chest discomfort [Unknown]
  - Headache [Unknown]
  - Influenza [Recovered/Resolved]
  - Abdominal pain upper [Recovered/Resolved]
  - Teething [Unknown]
  - Fatigue [Not Recovered/Not Resolved]
  - Dyspepsia [Unknown]
  - Nausea [Unknown]
  - Cough [Unknown]
  - Menstrual disorder [Not Recovered/Not Resolved]
  - Decreased appetite [Unknown]
  - Serum ferritin increased [Not Recovered/Not Resolved]
  - Libido decreased [Not Recovered/Not Resolved]
  - Oral pain [Unknown]
  - Rhinorrhoea [Unknown]
  - Nasal congestion [Unknown]
  - Diabetes mellitus [Unknown]
  - Asthenia [Unknown]
  - Nasopharyngitis [Recovered/Resolved]
  - Diarrhoea [Unknown]

NARRATIVE: CASE EVENT DATE: 201609
